FAERS Safety Report 9677963 (Version 1)
Quarter: 2013Q4

REPORT INFORMATION
  Report Type: Spontaneous
  Country: FR (occurrence: None)
  Receive Date: 20131106
  Receipt Date: 20131106
  Transmission Date: 20140711
  Serious: Yes (Disabling)
  Sender: FDA-Public Use
  Company Number: ACO_39291_2013

PATIENT
  Age: 57 Year
  Sex: Female

DRUGS (7)
  1. FAMPYRA (DALFAMPRIDINE) TABLET, 10MG [Suspect]
     Indication: GAIT DISTURBANCE
     Route: 048
     Dates: start: 20130524, end: 20130531
  2. LOXEN (NICARDIPINE HYDROCHLORIDE) SLOW RELEASE [Concomitant]
  3. REBIF (INTERFERON BETA-1A) [Concomitant]
  4. LEVOTHYROX (LEVOTHYROXINE SODIUM) INFUSION [Concomitant]
  5. LYRICA (PREGABALIN) [Concomitant]
  6. ALPRAZOLAM (ALPRAZOLAM) [Concomitant]
  7. BIPROFENID (KETOPROFEN) [Concomitant]

REACTIONS (1)
  - Hypersomnia [None]
